FAERS Safety Report 17460888 (Version 2)
Quarter: 2023Q1

REPORT INFORMATION
  Report Type: Spontaneous
  Country: DE (occurrence: DE)
  Receive Date: 20200226
  Receipt Date: 20230116
  Transmission Date: 20230417
  Serious: Yes (Hospitalization)
  Sender: FDA-Public Use
  Company Number: DE-ADRED-04316-01

PATIENT
  Age: 53 Year
  Sex: Female
  Weight: 59 kg

DRUGS (5)
  1. ACETAMINOPHEN\ASPIRIN\CAFFEINE [Suspect]
     Active Substance: ACETAMINOPHEN\ASPIRIN\CAFFEINE
     Dosage: 7X TO 8X
  2. ETORICOXIB [Suspect]
     Active Substance: ETORICOXIB
     Dosage: UNK
  3. OPIPRAMOL [Suspect]
     Active Substance: OPIPRAMOL
     Dosage: 50 MG, 1-0-1-0
  4. POTASSIUM IODIDE [Concomitant]
     Active Substance: POTASSIUM IODIDE
     Dosage: 200 ?G, 1-0-0-0
  5. CHOLECALCIFEROL [Concomitant]
     Active Substance: CHOLECALCIFEROL
     Dosage: UNK

REACTIONS (3)
  - Jaundice [Unknown]
  - Medication error [Unknown]
  - Product prescribing error [Unknown]

NARRATIVE: CASE EVENT DATE: 20191020
